FAERS Safety Report 4909292-3 (Version None)
Quarter: 2006Q1

REPORT INFORMATION
  Report Type: 
  Country: None (occurrence: None)
  Receive Date: 20060213
  Receipt Date: 20050912
  Transmission Date: 20060701
  Serious: Yes (Death, Hospitalization)
  Sender: FDA-Public Use
  Company Number: US-NOVOPROD-246930

PATIENT
  Age: 75 Year
  Sex: Male
  Weight: 82 kg

DRUGS (8)
  1. NOVOSEVEN [Suspect]
     Indication: ACQUIRED HAEMOPHILIA WITH ANTI FVIII, XI, OR XIII
     Dosage: 14 X 7.2 MG
     Dates: start: 20050818, end: 20050824
  2. RITUXIMAB [Concomitant]
     Dosage: 02-09-2005, 25-08-2005,18-08-2005
     Route: 015
  3. CYTOXAN [Concomitant]
     Dosage: 200 MG
     Route: 042
     Dates: start: 20050818, end: 20050901
  4. CYTOXAN [Concomitant]
     Route: 048
     Dates: start: 20050902, end: 20050903
  5. MEDROL [Concomitant]
     Dates: start: 20050818, end: 20050903
  6. HEMOFIL M [Concomitant]
     Dosage: 10000 U, SINGLE
     Dates: start: 20050817
  7. RED BLOOD CELLS [Concomitant]
     Dates: start: 20050815, end: 20050901
  8. FRESH FROZEN PLASMA [Concomitant]
     Dosage: 35 U, UNK
     Dates: start: 20050815, end: 20050901

REACTIONS (3)
  - CARDIAC FAILURE [None]
  - RESPIRATORY ARREST [None]
  - STAPHYLOCOCCAL SEPSIS [None]
